FAERS Safety Report 7822690-3 (Version None)
Quarter: 2011Q4

REPORT INFORMATION
  Report Type: 
  Country: None (occurrence: None)
  Receive Date: 20111018
  Receipt Date: 20111010
  Transmission Date: 20120403
  Serious: Yes (Hospitalization, Disabling, Other)
  Sender: FDA-Public Use
  Company Number: US-MERCK-1107USA01367

PATIENT
  Age: 67 Year
  Sex: Female
  Weight: 93 kg

DRUGS (7)
  1. FOSAMAX [Suspect]
     Indication: OSTEOPOROSIS
     Route: 048
     Dates: start: 20060719
  2. FOSAMAX [Suspect]
     Route: 048
     Dates: start: 20060101, end: 20100101
  3. FOSAMAX [Suspect]
     Route: 048
     Dates: start: 20060101, end: 20100101
  4. FOSAMAX PLUS D [Suspect]
     Indication: OSTEOPOROSIS
     Route: 048
     Dates: start: 20070724, end: 20101201
  5. HYDROCHLOROTHIAZIDE [Concomitant]
     Indication: HYPERTENSION
     Route: 048
     Dates: start: 19880101
  6. LISINOPRIL [Concomitant]
     Indication: HYPERTENSION
     Route: 048
     Dates: start: 19880101
  7. FOSAMAX [Suspect]
     Indication: OSTEOPENIA
     Route: 048
     Dates: start: 20060719

REACTIONS (32)
  - THYROID NEOPLASM [None]
  - FOOT FRACTURE [None]
  - SPINAL HAEMANGIOMA [None]
  - ATELECTASIS [None]
  - PAIN IN EXTREMITY [None]
  - ANAEMIA [None]
  - AORTIC ARTERIOSCLEROSIS [None]
  - CHONDROCALCINOSIS [None]
  - HEPATIC ENZYME INCREASED [None]
  - FIBRIN D DIMER INCREASED [None]
  - PLEURAL EFFUSION [None]
  - LOW TURNOVER OSTEOPATHY [None]
  - MUSCLE SPASMS [None]
  - BASAL CELL CARCINOMA [None]
  - VITAMIN D DEFICIENCY [None]
  - TOOTH DISORDER [None]
  - CONFUSIONAL STATE [None]
  - HIATUS HERNIA [None]
  - LUNG DISORDER [None]
  - BONE DISORDER [None]
  - HAEMOGLOBIN DECREASED [None]
  - TENDONITIS [None]
  - PARAKERATOSIS [None]
  - HYPERLIPIDAEMIA [None]
  - CAROTID ARTERY STENOSIS [None]
  - FEMUR FRACTURE [None]
  - CERVICAL DYSPLASIA [None]
  - DYSPNOEA EXERTIONAL [None]
  - WEIGHT INCREASED [None]
  - TENDON DISORDER [None]
  - RESTLESS LEGS SYNDROME [None]
  - OSTEOARTHRITIS [None]
